FAERS Safety Report 4390005-1 (Version None)
Quarter: 2004Q2

REPORT INFORMATION
  Report Type: 
  Country: None (occurrence: None)
  Receive Date: 20040630
  Receipt Date: 20040617
  Transmission Date: 20050107
  Serious: Yes (Other)
  Sender: FDA-Public Use
  Company Number: 2004040828

PATIENT
  Age: 54 Year
  Sex: Female

DRUGS (6)
  1. NEURONTIN [Suspect]
     Indication: TRIGEMINAL NEURALGIA
     Dosage: 400 MG (400 MG, 1 IN 1 D), ORAL
     Route: 048
     Dates: start: 20040506
  2. INSULIN GLARGINE (INSULIN GLARGINE) [Suspect]
     Indication: DIABETES MELLITUS
     Dosage: 100 IE/ML (UNKNOWN), SUBCUT
     Route: 058
  3. ISOPHANE INSULIN [Suspect]
     Indication: DIABETES MELLITUS
     Dosage: 100 IE/ML (UNKNOWN), SUBCUT
     Route: 058
  4. INSULIN ASPART (INSULIN ASPART) [Suspect]
     Indication: DIABETES MELLITUS
     Dosage: 100 IE/ML (UNKNOWN), SUBCUT
     Route: 058
  5. ACETYLSALICYLIC ACID SRT [Concomitant]
  6. PANTOPRAZOLE (PANTOPRAZOLE) [Concomitant]

REACTIONS (4)
  - CONDITION AGGRAVATED [None]
  - DIABETES MELLITUS [None]
  - DRUG INTERACTION [None]
  - TRIGEMINAL NEURALGIA [None]
